FAERS Safety Report 9374428 (Version 1)
Quarter: 2013Q2

REPORT INFORMATION
  Report Type: Spontaneous
  Country: US (occurrence: US)
  Receive Date: 20130628
  Receipt Date: 20130628
  Transmission Date: 20140414
  Serious: No
  Sender: FDA-Public Use
  Company Number: US-PFIZER INC-2013193080

PATIENT
  Age: 63 Year
  Sex: Female
  Weight: 70.3 kg

DRUGS (2)
  1. NEURONTIN [Suspect]
     Indication: FIBROMYALGIA
     Dosage: UNK
     Dates: start: 201302, end: 201302
  2. HEPSERA [Concomitant]
     Indication: HEPATITIS B
     Dosage: UNK

REACTIONS (3)
  - Off label use [Recovered/Resolved]
  - Balance disorder [Recovered/Resolved]
  - Confusional state [Recovered/Resolved]
